FAERS Safety Report 4517404-9 (Version None)
Quarter: 2004Q4

REPORT INFORMATION
  Report Type: 
  Country: None (occurrence: None)
  Receive Date: 20041022
  Receipt Date: 20040706
  Transmission Date: 20050328
  Serious: No
  Sender: FDA-Public Use
  Company Number: 800045

PATIENT
  Age: 76 Year
  Sex: Female
  Weight: 84.369 kg

DRUGS (7)
  1. EXTRANEAL [Suspect]
     Indication: PERITONEAL DIALYSIS
     Dosage: 2 L; QD; INTRAPERITONEAL
     Route: 033
     Dates: start: 20040615, end: 20040622
  2. INSULIN [Concomitant]
  3. LACTULOSE [Concomitant]
  4. THYROID TAB [Concomitant]
  5. PROTONIX [Concomitant]
  6. ALBUTEROL [Concomitant]
  7. ZETIA [Concomitant]

REACTIONS (2)
  - RASH PRURITIC [None]
  - SKIN DESQUAMATION [None]
